FAERS Safety Report 8002772-6 (Version None)
Quarter: 2011Q4

REPORT INFORMATION
  Report Type: 
  Country: None (occurrence: None)
  Receive Date: 20111222
  Receipt Date: 20111214
  Transmission Date: 20120403
  Serious: Yes (Hospitalization)
  Sender: FDA-Public Use
  Company Number: DK-B.I. PHARMACEUTICALS,INC./RIDGEFIELD-2011-SW-00537DB

PATIENT
  Sex: Female

DRUGS (5)
  1. PRADAXA [Suspect]
     Indication: EMBOLISM VENOUS
     Dosage: 220 MG
     Route: 048
     Dates: start: 20110101, end: 20110101
  2. SIMVASTATIN [Concomitant]
     Indication: HYPERCHOLESTEROLAEMIA
     Dates: start: 20100101
  3. METFORMIN ^ACTAVIS^ [Concomitant]
     Indication: DIABETES MELLITUS
     Dates: start: 20100101
  4. FUROSEMIDE [Concomitant]
     Indication: HYPERTENSION
     Dates: start: 20100101
  5. PRADAXA [Suspect]
     Indication: THROMBOSIS

REACTIONS (3)
  - UPPER GASTROINTESTINAL HAEMORRHAGE [None]
  - DEHYDRATION [None]
  - RENAL DISORDER [None]
